FAERS Safety Report 13041478 (Version 2)
Quarter: 2018Q4

REPORT INFORMATION
  Report Type: Spontaneous
  Country: US (occurrence: US)
  Receive Date: 20161219
  Receipt Date: 20181010
  Transmission Date: 20190204
  Serious: No
  Sender: FDA-Public Use
  Company Number: US-ROCHE-1224323

PATIENT
  Age: 13 Year
  Sex: Female

DRUGS (3)
  1. VEMURAFENIB. [Suspect]
     Active Substance: VEMURAFENIB
     Indication: GANGLIOGLIOMA
     Route: 048
     Dates: start: 201111
  2. VEMURAFENIB. [Suspect]
     Active Substance: VEMURAFENIB
     Route: 048
  3. VINBLASTINE [Concomitant]
     Active Substance: VINBLASTINE
     Indication: GANGLIOGLIOMA
     Route: 065
     Dates: start: 201111

REACTIONS (5)
  - Keratosis pilaris [Not Recovered/Not Resolved]
  - Telangiectasia [Unknown]
  - Intentional product use issue [Unknown]
  - Off label use [Unknown]
  - Arthralgia [Recovered/Resolved]
